FAERS Safety Report 23305411 (Version 1)
Quarter: 2023Q4

REPORT INFORMATION
  Report Type: Spontaneous
  Country: US (occurrence: US)
  Receive Date: 20231218
  Receipt Date: 20231218
  Transmission Date: 20240109
  Serious: No
  Sender: FDA-Public Use
  Company Number: US-ELI_LILLY_AND_COMPANY-US202312006055

PATIENT

DRUGS (1)
  1. CYMBALTA [Interacting]
     Active Substance: DULOXETINE HYDROCHLORIDE
     Indication: Product used for unknown indication
     Dosage: UNK UNK, UNKNOWN
     Route: 065

REACTIONS (11)
  - Abdominal distension [Unknown]
  - Prostatic specific antigen increased [Unknown]
  - Drug interaction [Unknown]
  - Brain fog [Unknown]
  - Gastrointestinal disorder [Unknown]
  - Breast enlargement [Unknown]
  - Depression [Unknown]
  - Weight increased [Unknown]
  - Fatigue [Unknown]
  - Tinnitus [Unknown]
  - Myalgia [Unknown]
